FAERS Safety Report 9933301 (Version 2)
Quarter: 2014Q1

REPORT INFORMATION
  Report Type: Report from Study
  Country: US (occurrence: US)
  Receive Date: 20140228
  Receipt Date: 20140228
  Transmission Date: 20141002
  Serious: No
  Sender: FDA-Public Use
  Company Number: US-MYLANLABS-2013S1004054

PATIENT
  Age: 16 Year
  Sex: Male
  Weight: 68 kg

DRUGS (3)
  1. CLARAVIS [Suspect]
     Indication: ACNE
     Route: 048
     Dates: start: 20120808, end: 201301
  2. CLARAVIS [Suspect]
     Indication: ACNE
     Route: 048
     Dates: start: 20120808, end: 20130111
  3. AMNESTEEM CAPSULES [Suspect]
     Indication: ACNE
     Route: 048
     Dates: start: 201301, end: 20130111

REACTIONS (6)
  - Depressed mood [Recovered/Resolved]
  - Blood triglycerides increased [Recovered/Resolved]
  - Irritability [Recovered/Resolved]
  - Affect lability [Recovered/Resolved]
  - Depression [Recovered/Resolved]
  - Anxiety [Recovered/Resolved]
